FAERS Safety Report 12968916 (Version 1)
Quarter: 2016Q4

REPORT INFORMATION
  Report Type: Report from Study
  Country: IT (occurrence: IT)
  Receive Date: 20161123
  Receipt Date: 20161123
  Transmission Date: 20170207
  Serious: Yes (Other)
  Sender: FDA-Public Use
  Company Number: IT-IPSEN BIOPHARMACEUTICALS, INC.-2016-10094

PATIENT
  Sex: Male

DRUGS (2)
  1. IPSTYL 60MG [Suspect]
     Active Substance: LANREOTIDE ACETATE
     Indication: NEUROENDOCRINE TUMOUR
     Dosage: 60 MG
     Route: 065
  2. IPSTYL 60MG [Suspect]
     Active Substance: LANREOTIDE ACETATE
     Indication: OFF LABEL USE

REACTIONS (2)
  - Toxicity to various agents [Unknown]
  - Off label use [Unknown]
